FAERS Safety Report 15308516 (Version 1)
Quarter: 2018Q3

REPORT INFORMATION
  Report Type: Report from Study
  Country: US (occurrence: US)
  Receive Date: 20180822
  Receipt Date: 20180822
  Transmission Date: 20181010
  Serious: Yes (Other)
  Sender: FDA-Public Use
  Company Number: US-MALLINCKRODT-T201803172

PATIENT
  Age: 49 Year
  Sex: Male

DRUGS (1)
  1. REPOSITORY CORTICOTROPIN INJECTION [Suspect]
     Active Substance: CORTICOTROPIN
     Indication: PULMONARY SARCOIDOSIS
     Dosage: 40 UNITS/0.5 ML, THREE TIMES PER WEEK (TUESDAY/THURSDAY/SATURDAY)
     Route: 058
     Dates: start: 20180724, end: 20180731

REACTIONS (5)
  - Flushing [Recovering/Resolving]
  - Diverticulitis [Unknown]
  - Hypoaesthesia oral [Not Recovered/Not Resolved]
  - Muscle spasms [Recovering/Resolving]
  - Dizziness [Recovering/Resolving]

NARRATIVE: CASE EVENT DATE: 2018
